FAERS Safety Report 10420991 (Version 1)
Quarter: 2014Q3

REPORT INFORMATION
  Report Type: Spontaneous
  Country: US (occurrence: None)
  Receive Date: 20140717
  Receipt Date: 20140717
  Transmission Date: 20150326
  Serious: Yes (Other)
  Sender: FDA-Public Use
  Company Number: ALCN2014US002421

PATIENT
  Age: 72 Year
  Sex: Female

DRUGS (1)
  1. SIMBRINZA [Suspect]
     Active Substance: BRIMONIDINE TARTRATE\BRINZOLAMIDE
     Indication: ANGLE CLOSURE GLAUCOMA
     Route: 047
     Dates: start: 201403

REACTIONS (2)
  - Visual impairment [None]
  - Lacrimation increased [None]
